FAERS Safety Report 7057434-9 (Version None)
Quarter: 2010Q4

REPORT INFORMATION
  Report Type: 
  Country: None (occurrence: None)
  Receive Date: 20101022
  Receipt Date: 20101014
  Transmission Date: 20110411
  Serious: Yes (Hospitalization)
  Sender: FDA-Public Use
  Company Number: JP-ROCHE-714559

PATIENT
  Sex: Female
  Weight: 60 kg

DRUGS (10)
  1. TOCILIZUMAB [Suspect]
     Indication: RHEUMATOID ARTHRITIS
     Route: 041
     Dates: start: 20090706, end: 20090706
  2. TOCILIZUMAB [Suspect]
     Route: 041
     Dates: start: 20090803, end: 20090803
  3. TOCILIZUMAB [Suspect]
     Route: 041
     Dates: start: 20090831, end: 20090831
  4. TOCILIZUMAB [Suspect]
     Route: 041
     Dates: start: 20090928, end: 20090928
  5. TOCILIZUMAB [Suspect]
     Route: 041
     Dates: start: 20091026, end: 20091026
  6. TOCILIZUMAB [Suspect]
     Route: 041
     Dates: start: 20091124, end: 20091124
  7. TOCILIZUMAB [Suspect]
     Route: 041
     Dates: start: 20091221
  8. BONALON [Concomitant]
     Route: 048
     Dates: start: 20090706
  9. BONALON [Concomitant]
     Route: 048
     Dates: start: 20090706
  10. PURSENNID [Concomitant]
     Route: 048
     Dates: start: 20090803, end: 20091220

REACTIONS (11)
  - BLOOD CREATININE DECREASED [None]
  - BLOOD PRESSURE DECREASED [None]
  - BODY TEMPERATURE INCREASED [None]
  - CONSTIPATION [None]
  - ERYTHEMA [None]
  - GINGIVAL SWELLING [None]
  - HAEMORRHOIDS [None]
  - HOT FLUSH [None]
  - OSTEOPOROSIS [None]
  - TENDON RUPTURE [None]
  - WHITE BLOOD CELL COUNT DECREASED [None]
